FAERS Safety Report 21480319 (Version 2)
Quarter: 2022Q4

REPORT INFORMATION
  Report Type: Spontaneous
  Country: FI (occurrence: FI)
  Receive Date: 20221019
  Receipt Date: 20221101
  Transmission Date: 20230113
  Serious: Yes (Hospitalization, Other)
  Sender: FDA-Public Use
  Company Number: FI-002147023-NVSC2022FI195118

PATIENT
  Age: 2 Year
  Sex: Male

DRUGS (1)
  1. METHOTREXATE [Suspect]
     Active Substance: METHOTREXATE
     Indication: Acute lymphocytic leukaemia
     Dosage: UNK
     Route: 065

REACTIONS (3)
  - Extravasation [Unknown]
  - Haematemesis [Unknown]
  - Subclavian vein perforation [Unknown]
